FAERS Safety Report 15158832 (Version 2)
Quarter: 2018Q4

REPORT INFORMATION
  Report Type: Spontaneous
  Country: US (occurrence: US)
  Receive Date: 20180718
  Receipt Date: 20181020
  Transmission Date: 20190204
  Serious: Yes (Other)
  Sender: FDA-Public Use
  Company Number: PHEH2018US029672

PATIENT
  Age: 45 Year
  Sex: Male

DRUGS (2)
  1. LENVATINIB [Suspect]
     Active Substance: LENVATINIB
     Indication: RENAL CANCER
     Dosage: 10 MG, QD (ONCE DAILY)
     Route: 048
     Dates: start: 20180626
  2. AFINITOR [Suspect]
     Active Substance: EVEROLIMUS
     Indication: RENAL CANCER
     Dosage: 5 MG, QD (ONCE DAILY)
     Route: 048

REACTIONS (6)
  - Renal cancer [Unknown]
  - Fatigue [Not Recovered/Not Resolved]
  - Malignant neoplasm progression [Unknown]
  - Hepatic enzyme increased [Recovered/Resolved]
  - Musculoskeletal stiffness [Unknown]
  - Pain [Unknown]

NARRATIVE: CASE EVENT DATE: 20180619
